FAERS Safety Report 16367032 (Version 2)
Quarter: 2019Q3

REPORT INFORMATION
  Report Type: Spontaneous
  Country: US (occurrence: US)
  Receive Date: 20190529
  Receipt Date: 20190822
  Transmission Date: 20191004
  Serious: No
  Sender: FDA-Public Use
  Company Number: US-SA-2019SA141710

PATIENT
  Age: 53 Year
  Sex: Female
  Weight: 69.3 kg

DRUGS (2)
  1. DUPIXENT [Suspect]
     Active Substance: DUPILUMAB
     Dosage: 300 MG QOW
     Route: 058
     Dates: start: 20190809
  2. DUPIXENT [Suspect]
     Active Substance: DUPILUMAB
     Indication: DERMATITIS ATOPIC
     Dosage: 300 MG, QOW
     Route: 058
     Dates: start: 20190514, end: 20190726

REACTIONS (13)
  - Hypoaesthesia [Unknown]
  - Dizziness [Unknown]
  - Headache [Recovering/Resolving]
  - Rash [Recovered/Resolved]
  - Hypoaesthesia oral [Unknown]
  - Nausea [Recovering/Resolving]
  - Migraine [Recovering/Resolving]
  - Dermatitis atopic [Unknown]
  - Chills [Unknown]
  - Peripheral coldness [Unknown]
  - Fatigue [Unknown]
  - Dizziness [Unknown]
  - Pruritus [Recovering/Resolving]

NARRATIVE: CASE EVENT DATE: 20190514
